FAERS Safety Report 12232646 (Version 3)
Quarter: 2016Q2

REPORT INFORMATION
  Report Type: Spontaneous
  Country: US (occurrence: US)
  Receive Date: 20160401
  Receipt Date: 20160622
  Transmission Date: 20160815
  Serious: No
  Sender: FDA-Public Use
  Company Number: PHEH2016US007596

PATIENT
  Sex: Male
  Weight: 21.8 kg

DRUGS (2)
  1. EXJADE [Suspect]
     Active Substance: DEFERASIROX
     Dosage: 750 MG, UNK
     Route: 048
  2. EXJADE [Suspect]
     Active Substance: DEFERASIROX
     Indication: THALASSAEMIA BETA
     Dosage: 875 MG, QD
     Route: 048

REACTIONS (4)
  - Proteinuria [Not Recovered/Not Resolved]
  - Wrong technique in product usage process [Unknown]
  - Creatinine urine increased [Unknown]
  - Haematuria [Not Recovered/Not Resolved]
